FAERS Safety Report 4359615-1 (Version None)
Quarter: 2004Q2

REPORT INFORMATION
  Report Type: 
  Country: None (occurrence: None)
  Receive Date: 20040513
  Receipt Date: 20040503
  Transmission Date: 20050107
  Serious: Yes (Other)
  Sender: FDA-Public Use
  Company Number: 206275

PATIENT
  Age: 18 Year
  Sex: Female

DRUGS (2)
  1. XOLAIR [Suspect]
     Indication: ASTHMA
     Dosage: MG, SUBCUTANEOUS
     Route: 058
  2. MEDROL [Suspect]
     Dosage: 60 MG,

REACTIONS (2)
  - ANAPHYLACTOID REACTION [None]
  - WHEEZING [None]
